FAERS Safety Report 7991910-7 (Version None)
Quarter: 2011Q4

REPORT INFORMATION
  Report Type: 
  Country: None (occurrence: None)
  Receive Date: 20111219
  Receipt Date: 20111213
  Transmission Date: 20120403
  Serious: Yes (Other)
  Sender: FDA-Public Use
  Company Number: US-PFIZER INC-2011304356

PATIENT
  Sex: Male

DRUGS (1)
  1. CHANTIX [Suspect]
     Dosage: UNK
     Dates: start: 20061001

REACTIONS (5)
  - MENTAL DISORDER [None]
  - LOSS OF CONSCIOUSNESS [None]
  - IMPAIRED DRIVING ABILITY [None]
  - INJURY [None]
  - EMOTIONAL DISTRESS [None]
